FAERS Safety Report 6258298-3 (Version None)
Quarter: 2009Q3

REPORT INFORMATION
  Report Type: 
  Country: None (occurrence: None)
  Receive Date: 20090707
  Receipt Date: 20090630
  Transmission Date: 20100115
  Serious: Yes (Death, Hospitalization)
  Sender: FDA-Public Use
  Company Number: AU-CELGENEUS-008-21880-09051521

PATIENT
  Sex: Female

DRUGS (14)
  1. REVLIMID [Suspect]
     Route: 048
     Dates: start: 20080919, end: 20081029
  2. MABTHERA [Concomitant]
     Indication: DRUG USE FOR UNKNOWN INDICATION
     Route: 065
  3. PLATELETS [Concomitant]
     Route: 051
     Dates: start: 20080911
  4. PLATELETS [Concomitant]
     Route: 051
     Dates: start: 20081012
  5. RED BLOOD CELLS [Concomitant]
     Indication: DRUG USE FOR UNKNOWN INDICATION
     Route: 051
  6. RED BLOOD CELLS [Concomitant]
     Route: 051
     Dates: start: 20081024
  7. CEFEPIME [Concomitant]
     Route: 065
     Dates: start: 20081016
  8. ACETAMINOPHEN [Concomitant]
     Route: 065
     Dates: start: 20081023
  9. ACETAMINOPHEN [Concomitant]
     Route: 065
     Dates: start: 20081024
  10. FENTANYL [Concomitant]
     Indication: DRUG USE FOR UNKNOWN INDICATION
     Route: 065
  11. FENTANYL [Concomitant]
     Route: 065
     Dates: start: 20081024
  12. CHLORAMBUCIL [Concomitant]
     Indication: DRUG USE FOR UNKNOWN INDICATION
     Route: 065
  13. DOXYCYCLINE [Concomitant]
     Indication: ASTHMA PROPHYLAXIS
     Route: 065
  14. EXJADE [Concomitant]
     Indication: IRON OVERLOAD
     Route: 065
     Dates: start: 20080101

REACTIONS (3)
  - CHRONIC LYMPHOCYTIC LEUKAEMIA [None]
  - ENDOCARDITIS PSEUDOMONAL [None]
  - SEPSIS [None]
